FAERS Safety Report 25268808 (Version 1)
Quarter: 2025Q2

REPORT INFORMATION
  Report Type: Spontaneous
  Country: US (occurrence: None)
  Receive Date: 20250505
  Receipt Date: 20250505
  Transmission Date: 20250716
  Serious: Yes (Death)
  Sender: FDA-CTU
  Company Number: None

PATIENT
  Sex: Male

DRUGS (6)
  1. BOSULIF [Suspect]
     Active Substance: BOSUTINIB MONOHYDRATE
     Indication: Chronic myeloid leukaemia
     Dosage: FREQUENCY : DAILY;?
     Route: 048
     Dates: start: 20220520
  2. BOSULIF [Concomitant]
     Active Substance: BOSUTINIB MONOHYDRATE
  3. DULOXETINE CAP 30MG [Concomitant]
  4. JARDIANCE TAB [Concomitant]
  5. MOUNJARO INJ 2.5/0.5 [Concomitant]
  6. PREGABALIN [Concomitant]
     Active Substance: PREGABALIN

REACTIONS (2)
  - Neck surgery [None]
  - Intentional dose omission [None]
